FAERS Safety Report 6710474-9 (Version None)
Quarter: 2010Q2

REPORT INFORMATION
  Report Type: 
  Country: None (occurrence: None)
  Receive Date: 20100430
  Receipt Date: 20100421
  Transmission Date: 20101027
  Serious: Yes (Other)
  Sender: FDA-Public Use
  Company Number: 2007JP001101

PATIENT
  Age: 27 Year
  Sex: Male

DRUGS (4)
  1. PROGRAF [Suspect]
     Indication: RENAL TRANSPLANT
  2. MYCOPHENOLATE MOFETIL [Concomitant]
  3. METHYLPREDNISOLONE (METHYLIPREDNISOLONE) [Concomitant]
  4. BASILIXIMAB (BASILIXIMAB) [Concomitant]

REACTIONS (1)
  - IGA NEPHROPATHY [None]
